FAERS Safety Report 6701224-0 (Version None)
Quarter: 2010Q2

REPORT INFORMATION
  Report Type: 
  Country: None (occurrence: None)
  Receive Date: 20100427
  Receipt Date: 20100412
  Transmission Date: 20101027
  Serious: Yes (Other)
  Sender: FDA-Public Use
  Company Number: DSA_42965_2010

PATIENT
  Age: 68 Year
  Sex: Female

DRUGS (2)
  1. ENALAPRIL MALEATE [Suspect]
     Indication: HYPERTENSION
     Dosage: (10 MG, ORAL)
     Route: 048
     Dates: start: 20000201, end: 20100202
  2. MODURETIC 5-50 [Suspect]
     Indication: HYPERTENSION
     Dosage: (DF ORAL)
     Route: 048
     Dates: start: 20000201

REACTIONS (1)
  - BLOOD PRESSURE INCREASED [None]
